FAERS Safety Report 10404051 (Version 1)
Quarter: 2014Q3

REPORT INFORMATION
  Report Type: Spontaneous
  Country: US (occurrence: US)
  Receive Date: 20140822
  Receipt Date: 20140822
  Transmission Date: 20150326
  Serious: Yes (Hospitalization, Other)
  Sender: FDA-Public Use
  Company Number: US-TAKEDA-2014TUS007582

PATIENT
  Sex: Female
  Weight: 56.69 kg

DRUGS (3)
  1. FANAPT [Concomitant]
     Active Substance: ILOPERIDONE
     Indication: SCHIZOAFFECTIVE DISORDER
     Dosage: UNK
     Route: 048
  2. BRINTELLIX [Suspect]
     Active Substance: VORTIOXETINE HYDROBROMIDE
     Indication: MAJOR DEPRESSION
     Dosage: 10 MG, QD
     Route: 048
     Dates: start: 20140816, end: 20140818
  3. KLONOPIN [Concomitant]
     Active Substance: CLONAZEPAM
     Indication: SCHIZOAFFECTIVE DISORDER
     Dosage: UNK
     Route: 048

REACTIONS (5)
  - Suicidal ideation [Unknown]
  - Abnormal behaviour [Unknown]
  - Hypertension [Unknown]
  - Heart rate increased [Unknown]
  - Disorientation [Unknown]
